FAERS Safety Report 8018713-1 (Version None)
Quarter: 2012Q1

REPORT INFORMATION
  Report Type: 
  Country: None (occurrence: None)
  Receive Date: 20120103
  Receipt Date: 20120103
  Transmission Date: 20120608
  Serious: Yes (Other)
  Sender: FDA-Public Use
  Company Number: None

PATIENT
  Age: 74 Year
  Sex: Male
  Weight: 83.914 kg

DRUGS (1)
  1. CIPROFLOXACIN [Suspect]
     Indication: PROSTATE INFECTION
     Dosage: 1 TAB MORNING AND 1 TAB @ NITE
     Route: 048
     Dates: start: 20110801, end: 20110815

REACTIONS (13)
  - INCORRECT DRUG ADMINISTRATION DURATION [None]
  - MUSCULOSKELETAL STIFFNESS [None]
  - GAIT DISTURBANCE [None]
  - DEPRESSION [None]
  - ARTHRALGIA [None]
  - TENDON PAIN [None]
  - PAIN [None]
  - GROIN PAIN [None]
  - TENDON DISORDER [None]
  - LOSS OF CONTROL OF LEGS [None]
  - FATIGUE [None]
  - PAIN IN EXTREMITY [None]
  - MUSCULAR WEAKNESS [None]
